FAERS Safety Report 18172253 (Version 4)
Quarter: 2020Q3

REPORT INFORMATION
  Report Type: Report from Study
  Country: None (occurrence: FR)
  Receive Date: 20200820
  Receipt Date: 20200921
  Transmission Date: 20201103
  Serious: Yes (Death, Hospitalization, Other)
  Sender: FDA-Public Use
  Company Number: FR-ABBVIE-20K-056-3440601-00

PATIENT
  Age: 79 Year
  Sex: Female
  Weight: 67 kg

DRUGS (3)
  1. FRESUBIN MEGAREAL FIBRE [Concomitant]
     Indication: PRODUCT USED FOR UNKNOWN INDICATION
  2. DUODOPA [Suspect]
     Active Substance: CARBIDOPA\LEVODOPA
     Indication: PARKINSON^S DISEASE
     Route: 050
     Dates: start: 201407
  3. DUODOPA [Suspect]
     Active Substance: CARBIDOPA\LEVODOPA

REACTIONS (10)
  - Device breakage [Unknown]
  - Enteral nutrition [Not Recovered/Not Resolved]
  - Weight increased [Recovering/Resolving]
  - Hyperthermia [Unknown]
  - Aspiration [Fatal]
  - Respiratory distress [Unknown]
  - Loss of personal independence in daily activities [Not Recovered/Not Resolved]
  - Constipation [Not Recovered/Not Resolved]
  - Dysstasia [Not Recovered/Not Resolved]
  - Respiratory disorder [Not Recovered/Not Resolved]

NARRATIVE: CASE EVENT DATE: 20200809
